FAERS Safety Report 5729078-X (Version None)
Quarter: 2008Q2

REPORT INFORMATION
  Report Type: 
  Country: None (occurrence: None)
  Receive Date: 20080506
  Receipt Date: 20080428
  Transmission Date: 20081010
  Serious: Yes (Other)
  Sender: FDA-Public Use
  Company Number: US-PFIZER INC-2008001211

PATIENT
  Sex: Female
  Weight: 63.5 kg

DRUGS (5)
  1. CHANTIX [Suspect]
     Indication: SMOKING CESSATION THERAPY
     Route: 048
     Dates: start: 20070801, end: 20080201
  2. LISINOPRIL [Concomitant]
     Indication: BLOOD PRESSURE
  3. SYNTHROID [Concomitant]
     Indication: THYROID DISORDER
  4. LIPITOR [Concomitant]
     Indication: BLOOD CHOLESTEROL
  5. PRILOSEC [Concomitant]

REACTIONS (4)
  - AGGRESSION [None]
  - ANGER [None]
  - DEPRESSED MOOD [None]
  - MEMORY IMPAIRMENT [None]
